FAERS Safety Report 6196696-7 (Version None)
Quarter: 2009Q2

REPORT INFORMATION
  Report Type: 
  Country: None (occurrence: None)
  Receive Date: 20090520
  Receipt Date: 20090512
  Transmission Date: 20091009
  Serious: Yes (Other)
  Sender: FDA-Public Use
  Company Number: FR-WATSON-2009-02751

PATIENT
  Age: 87 Year
  Sex: Male

DRUGS (3)
  1. TRELSTAR LA [Suspect]
     Indication: PROSTATE CANCER METASTATIC
     Dosage: 11.25 MG, NOT REPORTED
     Route: 065
     Dates: start: 20090314
  2. CASODEX [Concomitant]
     Indication: DRUG USE FOR UNKNOWN INDICATION
     Dosage: UNK
     Route: 048
     Dates: start: 20090201, end: 20090301
  3. PERMIXON                           /00833501/ [Concomitant]
     Indication: DRUG USE FOR UNKNOWN INDICATION
     Dosage: UNK
     Route: 065

REACTIONS (7)
  - BACK PAIN [None]
  - CONDITION AGGRAVATED [None]
  - DRUG HYPERSENSITIVITY [None]
  - DRUG INEFFECTIVE [None]
  - ITCHING SCAR [None]
  - PRURITUS [None]
  - URINARY RETENTION [None]
